FAERS Safety Report 4667590-5 (Version None)
Quarter: 2005Q2

REPORT INFORMATION
  Report Type: 
  Country: None (occurrence: None)
  Receive Date: 20050520
  Receipt Date: 20050330
  Transmission Date: 20051028
  Serious: Yes (Other)
  Sender: FDA-Public Use
  Company Number: PHEH2005US03755

PATIENT
  Age: 65 Year
  Sex: Female

DRUGS (17)
  1. AREDIA [Suspect]
     Indication: BREAST CANCER METASTATIC
     Dosage: UNK, UNK
     Dates: start: 20031006, end: 20040610
  2. ZYRTEC [Concomitant]
     Indication: SINUS CONGESTION
     Dosage: 10 MG, QD
  3. ACCUPRIL [Concomitant]
     Dosage: 40 MG, QD
  4. OXYBUTYNIN [Concomitant]
     Dosage: 5 MG, QD
  5. ALPRAZOLAM [Concomitant]
     Dosage: 0.5MG TID PRN
  6. NEXIUM [Concomitant]
     Indication: GASTROOESOPHAGEAL REFLUX DISEASE
     Dosage: 40 MG, QD
  7. HYDROCODONE BITARTRATE [Concomitant]
     Indication: PAIN
     Dosage: 7.5MG Q6H PRN
  8. NIOSPAN [Concomitant]
     Dosage: 1500 MG, QD
  9. OSCAL 500-D [Concomitant]
     Dosage: UNK, TID
  10. TORSEMIDE [Concomitant]
     Dosage: 20 MG, QD
  11. DILTIAZEM [Concomitant]
     Dosage: 180 MG, QD
  12. BEXTRA [Concomitant]
     Dosage: 20 MG, QD
  13. ANASTROZOLE [Concomitant]
     Dosage: 1 MG, QD
     Dates: start: 20011001
  14. DIGITEK [Concomitant]
     Dosage: 0.13 MG, QD
  15. TRICOR [Concomitant]
     Dosage: 160 MG, QD
  16. CLOMIPRAMINE HCL [Concomitant]
     Dosage: 150 MG, QD
  17. ASPIRIN [Concomitant]
     Dosage: 325 MG, QD

REACTIONS (5)
  - ASEPTIC NECROSIS BONE [None]
  - HYPERBARIC OXYGEN THERAPY [None]
  - OSTEOMYELITIS [None]
  - OSTEONECROSIS [None]
  - TOOTH EXTRACTION [None]
